FAERS Safety Report 21045269 (Version 1)
Quarter: 2022Q3

REPORT INFORMATION
  Report Type: Spontaneous
  Country: US (occurrence: US)
  Receive Date: 20220705
  Receipt Date: 20220705
  Transmission Date: 20221027
  Serious: No
  Sender: FDA-Public Use
  Company Number: US-ALXN-A202207814

PATIENT
  Sex: Male

DRUGS (1)
  1. ULTOMIRIS [Suspect]
     Active Substance: RAVULIZUMAB-CWVZ
     Indication: Atypical haemolytic uraemic syndrome
     Dosage: 3300 MG, Q56
     Route: 042

REACTIONS (7)
  - Dyspnoea [Unknown]
  - Feeling abnormal [Unknown]
  - Haemoptysis [Unknown]
  - Blood creatinine increased [Unknown]
  - Nausea [Unknown]
  - Vomiting [Unknown]
  - Fatigue [Unknown]
